FAERS Safety Report 5525186-7 (Version None)
Quarter: 2007Q4

REPORT INFORMATION
  Report Type: 
  Country: None (occurrence: None)
  Receive Date: 20071119
  Receipt Date: 20071119
  Transmission Date: 20080405
  Serious: Yes (Hospitalization)
  Sender: FDA-Public Use
  Company Number: None

PATIENT
  Age: 77 Year
  Sex: Male
  Weight: 87.15 kg

DRUGS (2)
  1. PLAVIX [Suspect]
     Indication: CEREBROVASCULAR ACCIDENT
     Dosage: 1/2 TABLET DAILY PO
     Route: 048
     Dates: start: 20070801, end: 20071113
  2. PLAVIX [Suspect]
     Indication: CORONARY ARTERY DISEASE
     Dosage: 1/2 TABLET DAILY PO
     Route: 048
     Dates: start: 20070801, end: 20071113

REACTIONS (1)
  - HAEMATURIA [None]
